FAERS Safety Report 4823211-X (Version None)
Quarter: 2005Q4

REPORT INFORMATION
  Report Type: 
  Country: None (occurrence: None)
  Receive Date: 20051104
  Receipt Date: 20051031
  Transmission Date: 20060501
  Serious: Yes (Death)
  Sender: FDA-Public Use
  Company Number: 2005-126683-NL

PATIENT
  Age: 31 Year
  Sex: Male

DRUGS (3)
  1. MIRTAZAPINE [Suspect]
     Dosage: DF
  2. CLOZAPINE [Suspect]
     Indication: SCHIZOPHRENIA
     Dosage: DF ORAL
     Route: 048
     Dates: start: 19960108
  3. ALCOHOL [Suspect]
     Dosage: DF

REACTIONS (6)
  - CARDIAC ARREST [None]
  - FEELING ABNORMAL [None]
  - LOSS OF CONSCIOUSNESS [None]
  - MULTIPLE DRUG OVERDOSE INTENTIONAL [None]
  - PULMONARY OEDEMA [None]
  - SUICIDAL IDEATION [None]
